FAERS Safety Report 8092096-3 (Version None)
Quarter: 2011Q4

REPORT INFORMATION
  Report Type: 
  Country: None (occurrence: None)
  Receive Date: 20111221
  Receipt Date: 20111104
  Transmission Date: 20120403
  Serious: Yes (Other)
  Sender: FDA-Public Use
  Company Number: PHHY2011US44505

PATIENT
  Age: 83 Year
  Sex: Male
  Weight: 63.5 kg

DRUGS (7)
  1. CALCIUM CARBONATE [Concomitant]
  2. EXJADE [Suspect]
     Indication: MYELODYSPLASTIC SYNDROME
     Dosage: 2500 MG, DAILY, ORAL, 2000 MG, DAILY, ORAL
     Route: 048
     Dates: start: 20110114
  3. GARLIC (ALLIUM SATIVUM) [Concomitant]
  4. PEPTO-BISMOL (BISMUTH SUBSALICYLATE) [Concomitant]
  5. OMEPRAZOLE [Concomitant]
  6. LORAZEPAM [Concomitant]
  7. REVLIMID [Concomitant]

REACTIONS (6)
  - DIZZINESS [None]
  - ASTHENIA [None]
  - CONSTIPATION [None]
  - DIARRHOEA [None]
  - HAEMATOCHEZIA [None]
  - ABDOMINAL PAIN UPPER [None]
